FAERS Safety Report 23684527 (Version 1)
Quarter: 2024Q1

REPORT INFORMATION
  Report Type: Spontaneous
  Country: US (occurrence: US)
  Receive Date: 20240328
  Receipt Date: 20240328
  Transmission Date: 20240409
  Serious: No
  Sender: FDA-Public Use
  Company Number: US-Evolus, Inc.-2024EV000002

PATIENT
  Sex: Female

DRUGS (3)
  1. JEUVEAU [Suspect]
     Active Substance: PRABOTULINUMTOXINA-XVFS
     Indication: Skin wrinkling
     Dosage: 12 UNITS FRONTALIS, 12 UNITS GLABELLA, 12 UNITS ORBICULARIS OCULI
     Dates: start: 20231006, end: 20231006
  2. JEUVEAU [Suspect]
     Active Substance: PRABOTULINUMTOXINA-XVFS
     Indication: Product use in unapproved indication
     Dosage: 6 UNITS GLABELLA AND 4 UNITS FRONTALIS
     Dates: start: 20231021, end: 20231021
  3. JEUVEAU [Suspect]
     Active Substance: PRABOTULINUMTOXINA-XVFS
     Dosage: 24 UNITS FRONTALIS, 28 UNITS GLABELLA, AND 8 UNITS ORBICULARIS OCULI
     Dates: start: 20231202, end: 20231202

REACTIONS (2)
  - Drug effect less than expected [Unknown]
  - Off label use [Unknown]
